FAERS Safety Report 5026655-9 (Version None)
Quarter: 2006Q2

REPORT INFORMATION
  Report Type: 
  Country: None (occurrence: None)
  Receive Date: 20060615
  Receipt Date: 20060613
  Transmission Date: 20061013
  Serious: Yes (Other)
  Sender: FDA-Public Use
  Company Number: CA-GLAXOSMITHKLINE-A0609024A

PATIENT
  Age: 66 Year
  Sex: Female

DRUGS (14)
  1. TIMENTIN [Suspect]
     Indication: DRUG USE FOR UNKNOWN INDICATION
     Dosage: 3.1G FOUR TIMES PER DAY
     Route: 042
  2. ATARAX [Concomitant]
     Route: 048
  3. ATROVENT [Concomitant]
  4. CALCIUM + VITAMIN D [Concomitant]
     Route: 048
  5. CIPRO [Concomitant]
     Route: 048
  6. COLACE [Concomitant]
     Route: 048
  7. ELAVIL [Concomitant]
     Route: 048
  8. FOSAMAX [Concomitant]
  9. MIACALCIN [Concomitant]
  10. MSIR [Concomitant]
     Route: 048
  11. PANTOPRAZOLE SODIUM [Concomitant]
     Route: 048
  12. SENOKOT [Concomitant]
     Route: 048
  13. SINGULAIR [Concomitant]
     Route: 048
  14. RIVOTRIL [Concomitant]
     Route: 048

REACTIONS (4)
  - ARTHRALGIA [None]
  - PYREXIA [None]
  - RASH [None]
  - SERUM SICKNESS [None]
